FAERS Safety Report 5703133-2 (Version None)
Quarter: 2008Q2

REPORT INFORMATION
  Report Type: 
  Country: None (occurrence: None)
  Receive Date: 20080411
  Receipt Date: 20080330
  Transmission Date: 20081010
  Serious: Yes (Other)
  Sender: FDA-Public Use
  Company Number: US-PFIZER INC-2008028674

PATIENT
  Sex: Female
  Weight: 90 kg

DRUGS (4)
  1. LYRICA [Suspect]
  2. LISINOPRIL [Concomitant]
  3. BENTYL [Concomitant]
  4. RANITIDINE [Concomitant]

REACTIONS (5)
  - ALTERED STATE OF CONSCIOUSNESS [None]
  - HALLUCINATION, AUDITORY [None]
  - PARAESTHESIA [None]
  - SUICIDAL IDEATION [None]
  - TINNITUS [None]
